FAERS Safety Report 6820150-X (Version None)
Quarter: 2010Q3

REPORT INFORMATION
  Report Type: 
  Country: None (occurrence: None)
  Receive Date: 20100707
  Receipt Date: 20100630
  Transmission Date: 20110219
  Serious: Yes (Other)
  Sender: FDA-Public Use
  Company Number: CA-MERCK-1006USA04606

PATIENT
  Sex: Female

DRUGS (2)
  1. FOSAMAX [Suspect]
     Route: 048
  2. ARIMIDEX [Suspect]
     Route: 048

REACTIONS (14)
  - ARTHRALGIA [None]
  - BALANCE DISORDER [None]
  - COUGH [None]
  - ERYTHEMA [None]
  - EYE SWELLING [None]
  - FALL [None]
  - FOOT FRACTURE [None]
  - HEADACHE [None]
  - HYPOAESTHESIA [None]
  - NERVE INJURY [None]
  - PARAESTHESIA [None]
  - UPPER LIMB FRACTURE [None]
  - URTICARIA [None]
  - VIITH NERVE PARALYSIS [None]
